FAERS Safety Report 13401385 (Version 2)
Quarter: 2020Q3

REPORT INFORMATION
  Report Type: Report from Study
  Country: PL (occurrence: PL)
  Receive Date: 20170404
  Receipt Date: 20170410
  Transmission Date: 20201105
  Serious: Yes (Death, Life-Threatening, Hospitalization)
  Sender: FDA-Public Use
  Company Number: PL-JNJFOC-20161115272

PATIENT
  Age: 70 Year
  Sex: Male
  Weight: 78 kg

DRUGS (46)
  1. DEXAMETHASONE. [Concomitant]
     Active Substance: DEXAMETHASONE
     Indication: PLASMA CELL MYELOMA
     Route: 048
     Dates: start: 20150205, end: 20161013
  2. FENTANYL. [Concomitant]
     Active Substance: FENTANYL
     Indication: BONE PAIN
     Route: 062
     Dates: start: 20150424, end: 20161122
  3. ENOXAPARIN SODIUM. [Concomitant]
     Active Substance: ENOXAPARIN SODIUM
     Indication: THROMBOSIS PROPHYLAXIS
     Route: 058
     Dates: start: 20150205
  4. COTRIMOXAZOLE [Concomitant]
     Active Substance: SULFAMETHOXAZOLE\TRIMETHOPRIM
     Indication: ANTIFUNGAL PROPHYLAXIS
     Route: 048
     Dates: start: 20150205
  5. INSULATARD HUMAN [Concomitant]
     Active Substance: INSULIN HUMAN
     Indication: ANAEMIA
     Route: 058
     Dates: start: 20161118, end: 20161211
  6. FLUCONAZOL [Concomitant]
     Active Substance: FLUCONAZOLE
     Indication: ANAEMIA
     Route: 048
     Dates: start: 20161114, end: 20161211
  7. TAMSULOSIN HYDROCHLORIDE. [Concomitant]
     Active Substance: TAMSULOSIN HYDROCHLORIDE
     Indication: BENIGN PROSTATIC HYPERPLASIA
     Route: 048
     Dates: start: 201103
  8. LOSARTAN POTASSIUM. [Concomitant]
     Active Substance: LOSARTAN POTASSIUM
     Indication: HYPERTENSION
     Route: 048
     Dates: start: 201103
  9. ACICLOVIR [Concomitant]
     Active Substance: ACYCLOVIR
     Indication: ANTIVIRAL PROPHYLAXIS
     Route: 048
     Dates: start: 20150205
  10. MIRTAZAPINUM [Concomitant]
     Indication: ANXIETY
     Route: 048
     Dates: start: 20160331
  11. ACTRAPID [Concomitant]
     Active Substance: INSULIN HUMAN
     Indication: ANAEMIA
     Route: 058
     Dates: start: 20161015, end: 20161212
  12. HEVIRAN [Concomitant]
     Active Substance: ACYCLOVIR
     Indication: ANAEMIA
     Route: 048
     Dates: start: 20161119, end: 20161129
  13. FINASTERIDUM [Concomitant]
     Indication: BENIGN PROSTATIC HYPERPLASIA
     Route: 048
     Dates: start: 201103
  14. LENALIDOMIDE [Concomitant]
     Active Substance: LENALIDOMIDE
     Indication: PLASMA CELL MYELOMA
     Dosage: ONCE DAILY ON DAYS 1?21 EACH CYCLE
     Route: 048
     Dates: start: 20150205, end: 20161102
  15. ALPRAZOLAMUM [Concomitant]
     Indication: MOOD ALTERED
     Route: 048
     Dates: start: 20150110
  16. FENTANYL. [Concomitant]
     Active Substance: FENTANYL
     Indication: BONE PAIN
     Route: 062
     Dates: start: 20150219, end: 20150424
  17. CYCLONAMINE [Concomitant]
     Active Substance: ETHAMSYLATE
     Indication: ANAEMIA
     Route: 048
     Dates: start: 20161114, end: 20161208
  18. DEXAVEN [Concomitant]
     Active Substance: DEXAMETHASONE
     Indication: ANAEMIA
     Route: 042
     Dates: start: 20161114, end: 20161210
  19. LACTULOSUM [Concomitant]
     Indication: ANAEMIA
     Route: 048
     Dates: start: 20161122, end: 20161211
  20. DARATUMUMAB [Suspect]
     Active Substance: DARATUMUMAB
     Indication: PLASMA CELL MYELOMA
     Dosage: FIRST DAY OF EACH CYCLE
     Route: 042
     Dates: start: 20150205, end: 20161013
  21. PANTOPRAZOLE [Concomitant]
     Active Substance: PANTOPRAZOLE
     Indication: GASTROINTESTINAL DISORDER THERAPY
     Route: 048
     Dates: start: 201512, end: 201611
  22. ZOLEDRONIC ACID [Concomitant]
     Active Substance: ZOLEDRONIC ACID
     Indication: PROPHYLAXIS
     Route: 042
     Dates: start: 20150205
  23. SIOFOR [Concomitant]
     Active Substance: METFORMIN HYDROCHLORIDE
     Indication: HYPERGLYCAEMIA
     Route: 048
     Dates: start: 20160218
  24. FUROSEMIDE. [Concomitant]
     Active Substance: FUROSEMIDE
     Indication: ANAEMIA
     Route: 048
     Dates: start: 20161116, end: 20161121
  25. IG VENA [Concomitant]
     Active Substance: HUMAN IMMUNOGLOBULIN G
     Indication: ANAEMIA
     Route: 042
     Dates: start: 20161118, end: 20161118
  26. LENDACIN [Concomitant]
     Active Substance: CEFTRIAXONE SODIUM
     Indication: PROPHYLAXIS
     Dates: start: 20161110, end: 20161114
  27. DIAZEPAM. [Concomitant]
     Active Substance: DIAZEPAM
     Indication: ANAEMIA
     Route: 042
     Dates: start: 20161205, end: 20161211
  28. LEVOFLOXACINUM [Concomitant]
     Indication: CATARACT
     Route: 047
     Dates: start: 20161004
  29. CONTROLOC [Concomitant]
     Active Substance: PANTOPRAZOLE SODIUM
     Indication: ANAEMIA
     Route: 048
     Dates: start: 20161115, end: 20161211
  30. CYCLONAMINE [Concomitant]
     Active Substance: ETHAMSYLATE
     Indication: ANAEMIA
     Route: 042
     Dates: start: 20161209, end: 20161212
  31. AUGMENTIN [Concomitant]
     Active Substance: AMOXICILLIN\CLAVULANATE POTASSIUM
     Indication: ANAEMIA
     Route: 042
     Dates: start: 20161119, end: 20161211
  32. OXYCONTIN [Concomitant]
     Active Substance: OXYCODONE HYDROCHLORIDE
     Indication: ANAEMIA
     Route: 048
     Dates: start: 20161115, end: 20161211
  33. DIURESIN [Concomitant]
     Active Substance: INDAPAMIDE
     Indication: HYPERTENSION
     Route: 048
     Dates: start: 201406
  34. KALII CHLORIDUM [Concomitant]
     Indication: PROPHYLAXIS
     Route: 048
     Dates: start: 201412
  35. POTASSIUM CHLORIDE. [Concomitant]
     Active Substance: POTASSIUM CHLORIDE
     Indication: ANAEMIA
     Route: 042
     Dates: start: 20161209, end: 20161211
  36. RANIGAST [Concomitant]
     Indication: ANAEMIA
     Route: 048
     Dates: start: 20161121, end: 20161211
  37. CYCLOPHOSPHAMIDE. [Concomitant]
     Active Substance: CYCLOPHOSPHAMIDE
     Route: 048
     Dates: start: 20161121
  38. HYDROCORTISONE. [Concomitant]
     Active Substance: HYDROCORTISONE
     Indication: ANAEMIA
     Route: 042
     Dates: start: 20161209, end: 20161210
  39. ENDOXAN [Concomitant]
     Active Substance: CYCLOPHOSPHAMIDE
     Indication: ANAEMIA
     Route: 048
     Dates: start: 20161121, end: 20161125
  40. DARATUMUMAB [Suspect]
     Active Substance: DARATUMUMAB
     Route: 042
  41. DEXAMETHASONE. [Concomitant]
     Active Substance: DEXAMETHASONE
     Route: 042
     Dates: start: 20161108
  42. DEXAMETHASONE SODIUM PHOSPHATE. [Concomitant]
     Active Substance: DEXAMETHASONE SODIUM PHOSPHATE
     Indication: CATARACT
     Route: 047
     Dates: start: 20161004
  43. DEXAVEN [Concomitant]
     Active Substance: DEXAMETHASONE
     Indication: ANAEMIA
     Route: 042
     Dates: start: 20161110, end: 20161113
  44. POTASSIUM CHLORIDE. [Concomitant]
     Active Substance: POTASSIUM CHLORIDE
     Indication: ANAEMIA
     Route: 042
     Dates: start: 20161114, end: 20161119
  45. VEROSPIRON [Concomitant]
     Active Substance: SPIRONOLACTONE
     Indication: ANAEMIA
     Route: 048
     Dates: start: 20161117, end: 20161123
  46. CLEMASTIN [Concomitant]
     Active Substance: CLEMASTINE
     Indication: ANAEMIA
     Route: 042
     Dates: start: 20161209, end: 20161210

REACTIONS (2)
  - Anaemia [Not Recovered/Not Resolved]
  - Cardiac arrest [Fatal]

NARRATIVE: CASE EVENT DATE: 20161107
